FAERS Safety Report 19883324 (Version 2)
Quarter: 2021Q3

REPORT INFORMATION
  Report Type: Spontaneous
  Country: IN (occurrence: IN)
  Receive Date: 20210926
  Receipt Date: 20210927
  Transmission Date: 20211014
  Serious: Yes (Other)
  Sender: FDA-Public Use
  Company Number: IN-MSNLABS-2021MSNLIT00398

PATIENT

DRUGS (2)
  1. MOXIFLOXACIN TABLETS 400 MG [Suspect]
     Active Substance: MOXIFLOXACIN
     Indication: NASOPHARYNGITIS
     Route: 065
  2. MOXIFLOXACIN TABLETS 400 MG [Suspect]
     Active Substance: MOXIFLOXACIN
     Indication: COUGH

REACTIONS (1)
  - Erythema multiforme [Recovered/Resolved]
